FAERS Safety Report 6145879-0 (Version None)
Quarter: 2009Q2

REPORT INFORMATION
  Report Type: 
  Country: None (occurrence: None)
  Receive Date: 20090407
  Receipt Date: 20090326
  Transmission Date: 20091009
  Serious: Yes (Death, Hospitalization)
  Sender: FDA-Public Use
  Company Number: HU-ROCHE-624085

PATIENT
  Age: 51 Year
  Sex: Male

DRUGS (1)
  1. PEGASYS [Suspect]
     Dosage: DOSE: 135 UMG. STOP DATE WAS REPORTED AS: 2009.
     Route: 065
     Dates: start: 20081215

REACTIONS (5)
  - ATRIOVENTRICULAR BLOCK [None]
  - BLINDNESS [None]
  - DISORIENTATION [None]
  - PULMONARY EMBOLISM [None]
  - THROMBOCYTOPENIA [None]
